FAERS Safety Report 25957375 (Version 4)
Quarter: 2025Q4

REPORT INFORMATION
  Report Type: Spontaneous
  Country: CA (occurrence: CA)
  Receive Date: 20251024
  Receipt Date: 20251205
  Transmission Date: 20260118
  Serious: Yes (Other)
  Sender: PFIZER
  Company Number: CA-PFIZER INC-202500102034

PATIENT
  Age: 69 Year
  Sex: Female
  Weight: 44.2 kg

DRUGS (8)
  1. ABRILADA [Suspect]
     Active Substance: ADALIMUMAB-AFZB
     Indication: Colitis microscopic
     Dosage: 160 MG (INDUCTION WEEK 0)
     Route: 058
     Dates: start: 20250926
  2. ABRILADA [Suspect]
     Active Substance: ADALIMUMAB-AFZB
     Dosage: 40 MG, INDUCTION WEEK 0=160MG, WEEK 2=80MGTHEN 40MG SC EVERY OTHER WEEK STARTING WEEK 4
     Route: 058
     Dates: start: 20250926
  3. ABRILADA [Suspect]
     Active Substance: ADALIMUMAB-AFZB
     Dosage: 80 MG (WEEK 2)
     Route: 058
     Dates: start: 20251010
  4. ABRILADA [Suspect]
     Active Substance: ADALIMUMAB-AFZB
     Dosage: 40 MG, EVERY 2 WEEKS
     Route: 058
     Dates: start: 20251023
  5. ABRILADA [Suspect]
     Active Substance: ADALIMUMAB-AFZB
     Dosage: 40 MG, EVERY 2 WEEKS
     Route: 058
     Dates: start: 20251107
  6. ABRILADA [Suspect]
     Active Substance: ADALIMUMAB-AFZB
     Dosage: 40 MG, EVERY 2 WEEKS
     Route: 058
     Dates: start: 20251121
  7. ENTOCORT [Concomitant]
     Active Substance: BUDESONIDE
     Dosage: 3X/DAY FOR THE LAST 2 YEARS
     Dates: start: 2023
  8. COLESEVELAM [Concomitant]
     Active Substance: COLESEVELAM
     Dosage: 2 TABLETS TWICE A DAY

REACTIONS (5)
  - Haematochezia [Recovered/Resolved]
  - Condition aggravated [Not Recovered/Not Resolved]
  - Muscle spasms [Recovered/Resolved]
  - Off label use [Unknown]
  - Drug effective for unapproved indication [Unknown]

NARRATIVE: CASE EVENT DATE: 20250101
